FAERS Safety Report 4709507-0 (Version None)
Quarter: 2005Q3

REPORT INFORMATION
  Report Type: 
  Country: None (occurrence: None)
  Receive Date: 20050706
  Receipt Date: 20050706
  Transmission Date: 20060218
  Serious: Yes (Hospitalization)
  Sender: FDA-Public Use
  Company Number: None

PATIENT
  Sex: Male

DRUGS (1)
  1. ULTRAVIST 300 [Suspect]
     Indication: SCAN WITH CONTRAST
     Dosage: 100 ML   ONCE   INTRAVENOU
     Route: 042
     Dates: start: 20050623, end: 20050623

REACTIONS (5)
  - BURNING SENSATION [None]
  - CONTRAST MEDIA REACTION [None]
  - DIZZINESS [None]
  - GRAND MAL CONVULSION [None]
  - HYPOTENSION [None]
